FAERS Safety Report 5642933-4 (Version None)
Quarter: 2008Q1

REPORT INFORMATION
  Report Type: 
  Country: None (occurrence: None)
  Receive Date: 20080226
  Receipt Date: 20080213
  Transmission Date: 20080703
  Serious: Yes (Hospitalization)
  Sender: FDA-Public Use
  Company Number: MEDI-0006567

PATIENT
  Age: 2 Month
  Sex: Male
  Weight: 2 kg

DRUGS (1)
  1. SYNAGIS [Suspect]
     Indication: ANTIVIRAL PROPHYLAXIS
     Dosage: 100 MG, INTRAVENOUS
     Route: 042
     Dates: start: 20080212, end: 20080212

REACTIONS (3)
  - ANAEMIA [None]
  - APATHY [None]
  - PALLOR [None]
